FAERS Safety Report 7111448-9 (Version None)
Quarter: 2010Q4

REPORT INFORMATION
  Report Type: 
  Country: None (occurrence: None)
  Receive Date: 20101118
  Receipt Date: 20100526
  Transmission Date: 20110411
  Serious: Yes (Other)
  Sender: FDA-Public Use
  Company Number: US-PFIZER INC-2010066728

PATIENT
  Age: 65 Year
  Sex: Male
  Weight: 76 kg

DRUGS (10)
  1. ZYVOX [Suspect]
     Indication: OSTEOMYELITIS
     Dosage: 600 MG, 2X/DAY
     Route: 048
     Dates: start: 20100401, end: 20100510
  2. AMLODIPINE [Concomitant]
     Indication: HYPERTENSION
     Dosage: 10 MG, 1X/DAY
     Route: 048
  3. ATORVASTATIN [Concomitant]
     Indication: HYPERCHOLESTEROLAEMIA
     Dosage: 10 MG, 1X/DAY
     Route: 048
  4. BRIMONIDINE [Concomitant]
     Indication: GLAUCOMA
     Dosage: 1 GTT, 2X/DAY
     Route: 047
  5. INSULIN [Concomitant]
     Indication: DIABETES MELLITUS
     Dosage: UNK
     Route: 058
  6. METOPROLOL [Concomitant]
     Indication: HYPERTENSION
     Dosage: 25 MG, 2X/DAY
     Route: 048
  7. ALL OTHER THERAPEUTIC PRODUCTS [Concomitant]
     Indication: RENAL FAILURE
     Dosage: UNK
     Route: 048
  8. CALCITRIOL [Concomitant]
     Indication: RENAL FAILURE
     Dosage: 0.25 MG, 1X/DAY
     Route: 048
  9. ACETYLSALICYLIC ACID [Concomitant]
     Indication: PROPHYLAXIS
     Dosage: 81 MG, 1X/DAY
     Route: 048
  10. LANTUS [Concomitant]
     Indication: DIABETES MELLITUS
     Dosage: UNK
     Route: 058

REACTIONS (1)
  - THROMBOCYTOPENIA [None]
